FAERS Safety Report 7549060-X (Version None)
Quarter: 2011Q2

REPORT INFORMATION
  Report Type: 
  Country: None (occurrence: None)
  Receive Date: 20110615
  Receipt Date: 20110608
  Transmission Date: 20111010
  Serious: Yes (Death, Other)
  Sender: FDA-Public Use
  Company Number: US-GENZYME-CAMP-1001689

PATIENT
  Age: 71 Year
  Sex: Male

DRUGS (9)
  1. CAMPATH [Suspect]
     Dosage: 30 MG Q2W FOR 16 WEEKS
     Route: 058
  2. CAMPATH [Suspect]
     Indication: CHRONIC LYMPHOCYTIC LEUKAEMIA
     Dosage: 3 MG, UNK IN 1ST WEEK
     Route: 058
  3. CAMPATH [Suspect]
     Dosage: 10 MG UNK IN 1ST WEEK
     Route: 058
  4. TRIMETHOPRIM + SULFAMETHOXAZOLE [Concomitant]
     Indication: ANTIFUNGAL PROPHYLAXIS
     Dosage: 1 TAB BID 3X/W FOR A MINIMUM 2 MONTHS
  5. FAMCICLOVIR [Concomitant]
     Indication: ANTIVIRAL PROPHYLAXIS
     Dosage: 250 MG, BID OR EQUIVALENT ANTIVIRAL AGENT FOR MINIMUM 2 MONTHS
     Route: 048
  6. CAMPATH [Suspect]
     Dosage: 30 MG 1X/W FOR 7 WEEKS
     Route: 058
  7. CAMPATH [Suspect]
     Dosage: 30 MG UNK IN 1ST WEEK
     Route: 058
  8. ACETAMINOPHEN [Concomitant]
     Indication: PREMEDICATION
     Dosage: 650 MG, UNK
     Route: 048
  9. DIPHENHYDRAMINE HCL [Concomitant]
     Indication: PREMEDICATION
     Dosage: 25 - 50 MG PO OR IV

REACTIONS (2)
  - NEOPLASM MALIGNANT [None]
  - IDIOPATHIC THROMBOCYTOPENIC PURPURA [None]
